FAERS Safety Report 9154673 (Version 1)
Quarter: 2013Q1

REPORT INFORMATION
  Report Type: Spontaneous
  Country: US (occurrence: None)
  Receive Date: 20130305
  Receipt Date: 20130305
  Transmission Date: 20140127
  Serious: Yes (Hospitalization)
  Sender: FDA-Public Use
  Company Number: None

PATIENT
  Age: 54 Year
  Sex: Male
  Weight: 85.1 kg

DRUGS (3)
  1. CAMPATH [Suspect]
     Dosage: 3MG + 10 MG 30 MG  3 X WEEKLY
     Dates: start: 20121121, end: 20130213
  2. RITUXIMAB [Suspect]
     Dosage: THREE TIMES A WEEK.
     Dates: start: 20121119, end: 20130213
  3. PENTOSTATIN [Suspect]
     Dates: start: 20121126, end: 20130204

REACTIONS (3)
  - Convulsion [None]
  - Central nervous system lesion [None]
  - Metastatic neoplasm [None]
